FAERS Safety Report 12218558 (Version 1)
Quarter: 2016Q1

REPORT INFORMATION
  Report Type: Spontaneous
  Country: US (occurrence: US)
  Receive Date: 20160329
  Receipt Date: 20160329
  Transmission Date: 20160526
  Serious: No
  Sender: FDA-Public Use
  Company Number: US-BAUSCH-BL-2015-018348

PATIENT
  Age: 62 Year
  Sex: Female

DRUGS (1)
  1. TRETINOIN CREAM 0.1% [Suspect]
     Active Substance: TRETINOIN
     Indication: ACNE CYSTIC
     Route: 061

REACTIONS (4)
  - Drug ineffective [Unknown]
  - Rash erythematous [Unknown]
  - Acne [Unknown]
  - Rash [Unknown]
